FAERS Safety Report 18115040 (Version 1)
Quarter: 2020Q3

REPORT INFORMATION
  Report Type: Spontaneous
  Country: CN (occurrence: CN)
  Receive Date: 20200805
  Receipt Date: 20200805
  Transmission Date: 20201103
  Serious: Yes (Hospitalization)
  Sender: FDA-Public Use
  Company Number: CN-ROCHE-2653373

PATIENT
  Age: 63 Year
  Sex: Male
  Weight: 62 kg

DRUGS (5)
  1. SODIUM CHLORIDE. [Concomitant]
     Active Substance: SODIUM CHLORIDE
     Indication: NEOPLASM
     Route: 041
     Dates: start: 20200717, end: 20200718
  2. RITUXIMAB. [Suspect]
     Active Substance: RITUXIMAB
     Indication: NEOPLASM
     Dosage: BATCH: SHO127
     Route: 041
     Dates: start: 20200717, end: 20200717
  3. EPIRUBICIN HYDROCHLORIDE. [Suspect]
     Active Substance: EPIRUBICIN HYDROCHLORIDE
     Indication: NEOPLASM
     Route: 041
     Dates: start: 20200717, end: 20200718
  4. SODIUM CHLORIDE. [Concomitant]
     Active Substance: SODIUM CHLORIDE
     Indication: NEOPLASM
     Route: 041
     Dates: start: 20200717, end: 20200717
  5. RITUXIMAB. [Suspect]
     Active Substance: RITUXIMAB
     Dosage: BATCH: SHO164
     Route: 041
     Dates: start: 20200717, end: 20200717

REACTIONS (1)
  - Myelosuppression [Recovering/Resolving]

NARRATIVE: CASE EVENT DATE: 20200724
